FAERS Safety Report 4339822-4 (Version None)
Quarter: 2004Q2

REPORT INFORMATION
  Report Type: 
  Country: None (occurrence: None)
  Receive Date: 20040416
  Receipt Date: 20040407
  Transmission Date: 20050107
  Serious: Yes (Death, Other)
  Sender: FDA-Public Use
  Company Number: PHFR2004GB01699

PATIENT
  Age: 47 Year
  Sex: Male

DRUGS (1)
  1. CLOZARIL [Suspect]
     Indication: SCHIZOPHRENIA
     Dosage: 700MG/DAY
     Route: 048

REACTIONS (5)
  - CARDIAC ARREST [None]
  - FAECALOMA [None]
  - INTESTINAL PERFORATION [None]
  - MYOCARDIAL INFARCTION [None]
  - VOMITING [None]
